FAERS Safety Report 9264475 (Version 2)
Quarter: 2013Q3

REPORT INFORMATION
  Report Type: Spontaneous
  Country: US (occurrence: US)
  Receive Date: 20130501
  Receipt Date: 20130924
  Transmission Date: 20140515
  Serious: Yes (Other)
  Sender: FDA-Public Use
  Company Number: US-OTSUKA-US-2013-10760

PATIENT
  Age: 72 Year
  Sex: Female

DRUGS (13)
  1. SAMSCA [Suspect]
     Indication: HYPONATRAEMIC SYNDROME
     Dosage: 15 MG MILLIGRAM(S), DAILY DOSE
     Dates: start: 20130316, end: 20130316
  2. SAMSCA [Suspect]
     Dosage: 1/4 TABLET, DAILY DOSE
     Route: 048
  3. SAMSCA [Suspect]
     Dosage: 1/2 TABLET DAILY DOSE
     Dates: start: 20130324, end: 20130324
  4. SAMSCA [Suspect]
     Dosage: 15 MG MILLIGRAM(S), EVERY 5 DAYS
     Dates: start: 201304
  5. POTASSIUM [Concomitant]
     Indication: PRODUCT USED FOR UNKNOWN INDICATION
  6. SODIUM [Concomitant]
     Indication: PRODUCT USED FOR UNKNOWN INDICATION
     Dosage: UNK UNK, TID
     Route: 048
  7. COMPAZINE [Concomitant]
     Indication: PRODUCT USED FOR UNKNOWN INDICATION
  8. LORAZEPAM [Concomitant]
     Indication: PRODUCT USED FOR UNKNOWN INDICATION
  9. ZOFRAN [Concomitant]
     Indication: PRODUCT USED FOR UNKNOWN INDICATION
  10. PERCOCET-5 [Concomitant]
     Indication: PRODUCT USED FOR UNKNOWN INDICATION
     Dosage: 325 MG MILLIGRAM(S), UNK
  11. LANACANE [Concomitant]
     Indication: PRODUCT USED FOR UNKNOWN INDICATION
  12. GABAPENTIN [Concomitant]
     Indication: PRODUCT USED FOR UNKNOWN INDICATION
  13. SALINE [Concomitant]
     Indication: PRODUCT USED FOR UNKNOWN INDICATION
     Route: 042

REACTIONS (5)
  - Balance disorder [Recovered/Resolved]
  - Rapid correction of hyponatraemia [Unknown]
  - Wrong technique in drug usage process [Unknown]
  - Wrong technique in drug usage process [Unknown]
  - Wrong technique in drug usage process [Unknown]
